FAERS Safety Report 9421459 (Version 1)
Quarter: 2013Q3

REPORT INFORMATION
  Report Type: Spontaneous
  Country: AU (occurrence: AU)
  Receive Date: 20130726
  Receipt Date: 20130726
  Transmission Date: 20140515
  Serious: Yes (Hospitalization)
  Sender: FDA-Public Use
  Company Number: AU-MERCK-1307AUS007771

PATIENT
  Age: 28 Month
  Sex: Male

DRUGS (1)
  1. LORATADINE [Suspect]
     Dosage: 3-4 TIMES TOTAL DAILY DOSE FOR CHILD
     Route: 048
     Dates: start: 2006

REACTIONS (2)
  - Accidental overdose [Unknown]
  - Accidental exposure to product by child [Unknown]
